FAERS Safety Report 18661675 (Version 1)
Quarter: 2020Q4

REPORT INFORMATION
  Report Type: Spontaneous
  Country: US (occurrence: US)
  Receive Date: 20201224
  Receipt Date: 20201224
  Transmission Date: 20210114
  Serious: Yes (Death, Other)
  Sender: FDA-Public Use
  Company Number: US-009507513-2012USA010501

PATIENT
  Age: 43 Year
  Sex: Male

DRUGS (3)
  1. PRINIVIL [Suspect]
     Active Substance: LISINOPRIL
     Route: 048
  2. GLIPIZIDE (+) METFORMIN HYDROCHLORIDE [Suspect]
     Active Substance: GLIPIZIDE\METFORMIN HYDROCHLORIDE
     Route: 048
  3. ZOLPIDEM [Suspect]
     Active Substance: ZOLPIDEM TARTRATE
     Route: 048

REACTIONS (1)
  - Suspected suicide [Fatal]
